FAERS Safety Report 8565673-0 (Version None)
Quarter: 2012Q3

REPORT INFORMATION
  Report Type: 
  Country: None (occurrence: None)
  Receive Date: 20120803
  Receipt Date: 20110928
  Transmission Date: 20120928
  Serious: No
  Sender: FDA-Public Use
  Company Number: US-ABBOTT-11P-163-0858406-00

PATIENT
  Sex: Female

DRUGS (4)
  1. NIASPAN [Suspect]
     Indication: PRODUCT USED FOR UNKNOWN INDICATION
     Dosage: AT BEDTIME
     Route: 048
  2. UNKNOWN MEDICATION [Concomitant]
     Indication: DIABETES MELLITUS
  3. UNKNOWN MEDICATIONS [Concomitant]
     Indication: SUPPLEMENTATION THERAPY
  4. NIASPAN [Suspect]
     Dosage: IN THE MORNING
     Route: 048

REACTIONS (1)
  - FLUSHING [None]
